FAERS Safety Report 7723412-7 (Version None)
Quarter: 2011Q3

REPORT INFORMATION
  Report Type: 
  Country: None (occurrence: None)
  Receive Date: 20110826
  Receipt Date: 20110816
  Transmission Date: 20111222
  Serious: Yes (Other)
  Sender: FDA-Public Use
  Company Number: DSM-2011-00730

PATIENT
  Age: 63 Year
  Sex: Male
  Weight: 103 kg

DRUGS (2)
  1. NEBILOX (NEBIVOLOL HYDROCHLORIDE) [Concomitant]
  2. SEVIKAR (OLMESARTAN MEDOXOMIL, AMLODIPINE BESILATE) (TABLET) [Suspect]
     Indication: HYPERTENSION
     Dosage: ORAL
     Route: 048
     Dates: start: 20091208, end: 20110720

REACTIONS (6)
  - NAUSEA [None]
  - WEIGHT DECREASED [None]
  - DECREASED APPETITE [None]
  - ERYTHEMA [None]
  - RHINORRHOEA [None]
  - VOMITING [None]
